FAERS Safety Report 23836552 (Version 9)
Quarter: 2024Q4

REPORT INFORMATION
  Report Type: Spontaneous
  Country: US (occurrence: US)
  Receive Date: 20240509
  Receipt Date: 20241009
  Transmission Date: 20250115
  Serious: No
  Sender: NOVARTIS
  Company Number: US-002147023-NVSC2024US096937

PATIENT

DRUGS (3)
  1. COSENTYX [Suspect]
     Active Substance: SECUKINUMAB
     Indication: Psoriasis
     Dosage: UNK
     Route: 065
  2. COSENTYX [Suspect]
     Active Substance: SECUKINUMAB
     Indication: Psoriatic arthropathy
  3. PREDNISONE [Concomitant]
     Active Substance: PREDNISONE
     Indication: Product used for unknown indication
     Dosage: UNK
     Route: 065

REACTIONS (11)
  - Therapy partial responder [Unknown]
  - Fatigue [Unknown]
  - Abdominal distension [Unknown]
  - Weight decreased [Unknown]
  - Psoriasis [Unknown]
  - Arthropathy [Unknown]
  - Pain [Unknown]
  - Swelling [Unknown]
  - Arthralgia [Unknown]
  - Product administration interrupted [Unknown]
  - Drug ineffective [Unknown]
